FAERS Safety Report 6424993-6 (Version None)
Quarter: 2009Q4

REPORT INFORMATION
  Report Type: 
  Country: None (occurrence: None)
  Receive Date: 20091103
  Receipt Date: 20091021
  Transmission Date: 20100525
  Serious: Yes (Other)
  Sender: FDA-Public Use
  Company Number: IS-PFIZER INC-2009277954

PATIENT
  Age: 57 Year
  Sex: Male

DRUGS (7)
  1. CHAMPIX [Suspect]
     Indication: SMOKING CESSATION THERAPY
  2. DAREN [Concomitant]
  3. GLUCOPHAGE [Concomitant]
  4. ACETYLSALICYLIC ACID [Concomitant]
     Dosage: 375 MG, UNK
  5. PLAVIX [Concomitant]
  6. SELOKEN [Concomitant]
  7. SIMVASTATIN [Concomitant]

REACTIONS (2)
  - PROSTATISM [None]
  - URINARY RETENTION [None]
